FAERS Safety Report 9829134 (Version 1)
Quarter: 2014Q1

REPORT INFORMATION
  Report Type: Spontaneous
  Country: US (occurrence: US)
  Receive Date: 20140119
  Receipt Date: 20140119
  Transmission Date: 20141002
  Serious: No
  Sender: FDA-Public Use
  Company Number: US-009507513-1401USA006476

PATIENT
  Age: 21 Year
  Sex: Female
  Weight: 99.32 kg

DRUGS (1)
  1. NUVARING [Suspect]
     Indication: CONTRACEPTION
     Dosage: UNK
     Route: 067
     Dates: start: 201201

REACTIONS (2)
  - Breast pain [Not Recovered/Not Resolved]
  - Affect lability [Not Recovered/Not Resolved]
